FAERS Safety Report 4339798-X (Version None)
Quarter: 2004Q2

REPORT INFORMATION
  Report Type: 
  Country: None (occurrence: None)
  Receive Date: 20040416
  Receipt Date: 20030527
  Transmission Date: 20050107
  Serious: No
  Sender: FDA-Public Use
  Company Number: US-BRISTOL-MYERS SQUIBB COMPANY-12285581

PATIENT
  Age: 58 Year
  Sex: Female
  Weight: 51 kg

DRUGS (5)
  1. CAPTOPRIL [Suspect]
     Indication: HYPERTENSION
     Route: 048
     Dates: start: 20021008, end: 20021201
  2. CLIMARA [Concomitant]
     Route: 062
  3. MULTI-VITAMIN [Concomitant]
  4. VITAMIN E [Concomitant]
  5. CALCIUM SUPPLEMENT [Concomitant]

REACTIONS (2)
  - BURNING SENSATION [None]
  - PAIN IN EXTREMITY [None]
